FAERS Safety Report 12376849 (Version 1)
Quarter: 2016Q2

REPORT INFORMATION
  Report Type: Report from Study
  Country: US (occurrence: US)
  Receive Date: 20160517
  Receipt Date: 20160517
  Transmission Date: 20160815
  Serious: No
  Sender: FDA-Public Use
  Company Number: US-MALLINCKRODT-T201503297

PATIENT
  Age: 29 Year
  Sex: Male

DRUGS (2)
  1. ASA [Concomitant]
     Active Substance: ASPIRIN
     Dosage: QD
  2. REPOSITORY CORTICOTROPIN INJECTION [Suspect]
     Active Substance: CORTICOTROPIN
     Indication: SARCOIDOSIS
     Dosage: 80 UNITS Q 3 DAYS
     Route: 030

REACTIONS (17)
  - Vision blurred [Unknown]
  - Amnesia [Unknown]
  - Pain [Unknown]
  - Headache [Unknown]
  - Fatigue [Unknown]
  - Nasal congestion [Unknown]
  - Chest discomfort [Unknown]
  - Dizziness [Unknown]
  - Drug dose omission [Unknown]
  - Palpitations [Unknown]
  - Paraesthesia [Unknown]
  - Malaise [Recovered/Resolved]
  - Dyspnoea [Unknown]
  - Chest pain [Unknown]
  - Haemoptysis [Unknown]
  - Somnolence [Unknown]
  - Nausea [Unknown]

NARRATIVE: CASE EVENT DATE: 20150629
